FAERS Safety Report 20956499 (Version 1)
Quarter: 2022Q2

REPORT INFORMATION
  Report Type: Spontaneous
  Country: IN (occurrence: US)
  Receive Date: 20220614
  Receipt Date: 20220614
  Transmission Date: 20220721
  Serious: No
  Sender: FDA-Public Use
  Company Number: US-MLMSERVICE-20191212-2081728-3

PATIENT
  Age: 13 Month
  Sex: Male

DRUGS (2)
  1. PROPRANOLOL [Suspect]
     Active Substance: PROPRANOLOL HYDROCHLORIDE
     Indication: Infantile haemangioma
     Dosage: UNK
     Route: 048
  2. PROPRANOLOL [Suspect]
     Active Substance: PROPRANOLOL HYDROCHLORIDE
     Dosage: 1 MG/KG, UNK
     Route: 048

REACTIONS (4)
  - Nausea [Unknown]
  - Drug intolerance [Unknown]
  - Off label use [Unknown]
  - Product administered to patient of inappropriate age [Unknown]
